FAERS Safety Report 9359359 (Version 1)
Quarter: 2013Q2

REPORT INFORMATION
  Report Type: Spontaneous
  Country: US (occurrence: US)
  Receive Date: 20130620
  Receipt Date: 20130620
  Transmission Date: 20140414
  Serious: No
  Sender: FDA-Public Use
  Company Number: US-US-EMD SERONO, INC.-7028335

PATIENT
  Age: 45 Year
  Sex: Female

DRUGS (2)
  1. REBIF [Suspect]
     Indication: PRODUCT USED FOR UNKNOWN INDICATION
     Route: 058
     Dates: start: 20100320
  2. UNSPECIFIED MEDICATION [Concomitant]
     Indication: HYPERTENSION

REACTIONS (3)
  - Pre-eclampsia [Unknown]
  - Normal newborn [Recovered/Resolved]
  - Maternal exposure timing unspecified [Recovered/Resolved]
